FAERS Safety Report 20918381 (Version 4)
Quarter: 2024Q3

REPORT INFORMATION
  Report Type: Report from Study
  Country: US (occurrence: US)
  Receive Date: 20220606
  Receipt Date: 20240903
  Transmission Date: 20241017
  Serious: Yes (Death, Other)
  Sender: TAKEDA
  Company Number: US-SHIRE-US202000844

PATIENT
  Age: 15 Year
  Sex: Female

DRUGS (2)
  1. HUMAN IMMUNOGLOBULIN G [Suspect]
     Active Substance: HUMAN IMMUNOGLOBULIN G
     Indication: Primary immunodeficiency syndrome
     Dosage: 12 GRAM, 1/WEEK
     Route: 065
  2. HUMAN IMMUNOGLOBULIN G [Suspect]
     Active Substance: HUMAN IMMUNOGLOBULIN G
     Indication: Immunodeficiency common variable
     Dosage: UNK
     Route: 058

REACTIONS (17)
  - Completed suicide [Fatal]
  - Depression [Unknown]
  - Kidney infection [Unknown]
  - Road traffic accident [Unknown]
  - Neck pain [Not Recovered/Not Resolved]
  - Flank pain [Unknown]
  - Fall [Unknown]
  - Upper limb fracture [Unknown]
  - Urinary tract infection [Unknown]
  - Chest pain [Not Recovered/Not Resolved]
  - Pyrexia [Unknown]
  - Back pain [Unknown]
  - Infusion site erythema [Unknown]
  - Infusion site swelling [Unknown]
  - Infusion site pain [Unknown]
  - Arthralgia [Not Recovered/Not Resolved]
  - COVID-19 [Not Recovered/Not Resolved]

NARRATIVE: CASE EVENT DATE: 20200109
